FAERS Safety Report 6073656-8 (Version None)
Quarter: 2009Q1

REPORT INFORMATION
  Report Type: 
  Country: None (occurrence: None)
  Receive Date: 20090211
  Receipt Date: 20090130
  Transmission Date: 20090719
  Serious: Yes (Death)
  Sender: FDA-Public Use
  Company Number: US-TYCO HEALTHCARE/MALLINCKRODT-T200900205

PATIENT
  Age: 36 Year
  Sex: Male

DRUGS (4)
  1. OXYCODONE HCL EXTENDED-RELEASE [Suspect]
  2. VENLAFAXINE HCL [Suspect]
  3. QUETIAPINE FUMARATE [Suspect]
  4. ALPRAZOLAM [Suspect]

REACTIONS (1)
  - COMPLETED SUICIDE [None]
